FAERS Safety Report 15230181 (Version 1)
Quarter: 2018Q3

REPORT INFORMATION
  Report Type: Spontaneous
  Country: US (occurrence: US)
  Receive Date: 20180802
  Receipt Date: 20180802
  Transmission Date: 20181010
  Serious: Yes (Other)
  Sender: FDA-Public Use
  Company Number: US-ACCORD-066501

PATIENT
  Age: 42 Year
  Sex: Female
  Weight: 86.18 kg

DRUGS (9)
  1. ALOXI [Concomitant]
     Active Substance: PALONOSETRON HYDROCHLORIDE
  2. PRAMIPEXOLE/PRAMIPEXOLE DIHYDROCHLORIDE [Concomitant]
     Dates: start: 20160411, end: 20161107
  3. LETROZOLE. [Concomitant]
     Active Substance: LETROZOLE
     Dates: start: 20160329, end: 20160908
  4. CARBOPLATIN. [Concomitant]
     Active Substance: CARBOPLATIN
     Dosage: DOSE: AUC 6
  5. NEULASTA [Concomitant]
     Active Substance: PEGFILGRASTIM
  6. DEXAMETHASONE. [Concomitant]
     Active Substance: DEXAMETHASONE
  7. DOCETAXEL ACCORD [Suspect]
     Active Substance: DOCETAXEL
     Indication: BREAST CANCER
     Dosage: DOSE: 75 MG/M2
     Dates: start: 20150717, end: 20151030
  8. HERCEPTIN [Concomitant]
     Active Substance: TRASTUZUMAB
     Dosage: DOSE: 6 MG/KG
  9. LIOTHYRONINE [Concomitant]
     Active Substance: LIOTHYRONINE
     Dates: start: 20160402

REACTIONS (1)
  - Alopecia [Not Recovered/Not Resolved]

NARRATIVE: CASE EVENT DATE: 201604
